FAERS Safety Report 5500546-9 (Version None)
Quarter: 2007Q4

REPORT INFORMATION
  Report Type: 
  Country: None (occurrence: None)
  Receive Date: 20071025
  Receipt Date: 20071015
  Transmission Date: 20080405
  Serious: Yes (Hospitalization)
  Sender: FDA-Public Use
  Company Number: 238879K07USA

PATIENT
  Age: 60 Year
  Sex: Female
  Weight: 60.782 kg

DRUGS (11)
  1. REBIF [Suspect]
     Indication: MULTIPLE SCLEROSIS
     Dosage: 44 MCG, 3 IN 1 WEEKS, SUBCUTANEOUS
     Route: 058
     Dates: start: 20070223, end: 20071009
  2. TRAZODONE HCL [Concomitant]
  3. TRICOR [Concomitant]
  4. METFORMIN (METFORMIN /00082701/) [Concomitant]
  5. THYROID TAB [Concomitant]
  6. CYMBALTA [Concomitant]
  7. TRILEPTAL [Concomitant]
  8. ALLEGREA (FEXOFENADINE HYDROCHLORIDE) [Concomitant]
  9. PRILOSEC [Concomitant]
  10. VYTORIN [Concomitant]
  11. SINGULAIR (MONTELUKAST /01362601/) [Concomitant]

REACTIONS (3)
  - CONDITION AGGRAVATED [None]
  - DEPRESSION [None]
  - SUICIDAL IDEATION [None]
